FAERS Safety Report 19063994 (Version 3)
Quarter: 2021Q2

REPORT INFORMATION
  Report Type: Spontaneous
  Country: IN (occurrence: IN)
  Receive Date: 20210326
  Receipt Date: 20210408
  Transmission Date: 20210717
  Serious: Yes (Other)
  Sender: FDA-Public Use
  Company Number: IN-ABBVIE-21P-078-3832061-00

PATIENT
  Age: 38 Year
  Sex: Female
  Weight: 61 kg

DRUGS (7)
  1. THYRONORM [Suspect]
     Active Substance: LEVOTHYROXINE
     Indication: HYPOTHYROIDISM
     Dosage: WAS TAKING THYRONORM 75MCG SINCE YEAR 2009. SINCE THE BEGINNING, FOR THE PAST 12 YEARS.
     Route: 048
     Dates: start: 2009, end: 20201031
  2. THYRONORM [Suspect]
     Active Substance: LEVOTHYROXINE
     Dosage: ONCE DAILY, 7 DAYS A WEEK; DAILY DOSE: 62.5 MICROGRAM; BOTTLE 2
     Route: 048
     Dates: start: 20201101, end: 20201105
  3. THYRONORM [Suspect]
     Active Substance: LEVOTHYROXINE
     Dosage: SWITCHED BACK TO BOTTLE 1 WITHOUT ANY ISSUES
     Route: 048
     Dates: start: 2021, end: 2021
  4. THYRONORM [Suspect]
     Active Substance: LEVOTHYROXINE
     Dosage: CONTINUED UNTIL FEB 2021 WITHOUT ANY ADVERSE EFFECTS.
     Route: 048
     Dates: start: 20201106, end: 20210220
  5. THYRONORM [Suspect]
     Active Substance: LEVOTHYROXINE
     Dosage: ONCE DAILY, 6 DAYS A WEEK, NO ADVERSE EFFECTS.;  DAILY DOSE: 75 MICROGRAM; BOTTLE 1
     Route: 048
     Dates: start: 2021, end: 2021
  6. THYRONORM [Suspect]
     Active Substance: LEVOTHYROXINE
     Dosage: SUSPECT DRUG REINTRODUCED
     Route: 048
     Dates: start: 20210305, end: 2021
  7. THYRONORM [Suspect]
     Active Substance: LEVOTHYROXINE
     Dosage: ONCE DAILY, 6 DAYS A WEEK; DAILY DOSE: 75 MICROGRAM; BOTTLE 3
     Route: 048
     Dates: start: 20210221, end: 20210225

REACTIONS (33)
  - Chest pain [Recovered/Resolved]
  - Pain in extremity [Recovered/Resolved]
  - Migraine [Recovered/Resolved]
  - Product quality issue [Unknown]
  - Pain in extremity [Recovered/Resolved]
  - Pain [Recovered/Resolved]
  - Abdominal pain upper [Recovered/Resolved]
  - Weight decreased [Recovered/Resolved]
  - Arthralgia [Recovered/Resolved]
  - Abdominal pain upper [Recovered/Resolved]
  - Weight decreased [Recovered/Resolved]
  - Fatigue [Recovered/Resolved]
  - Fatigue [Recovered/Resolved]
  - Arthralgia [Recovered/Resolved]
  - Chest pain [Recovered/Resolved]
  - Heart rate increased [Recovered/Resolved]
  - Arthralgia [Recovered/Resolved]
  - Heart rate increased [Recovered/Resolved]
  - Pain [Recovered/Resolved]
  - Chest pain [Recovered/Resolved]
  - Pyrexia [Recovered/Resolved]
  - Pyrexia [Recovered/Resolved]
  - Fatigue [Recovered/Resolved]
  - Pyrexia [Recovered/Resolved]
  - Abdominal pain upper [Recovered/Resolved]
  - Weight decreased [Recovered/Resolved]
  - Nausea [Recovered/Resolved]
  - Diarrhoea [Recovered/Resolved]
  - Pain [Recovered/Resolved]
  - Pain in extremity [Recovered/Resolved]
  - Migraine [Recovered/Resolved]
  - Migraine [Recovered/Resolved]
  - Heart rate increased [Recovered/Resolved]

NARRATIVE: CASE EVENT DATE: 202011
